FAERS Safety Report 25405570 (Version 2)
Quarter: 2025Q3

REPORT INFORMATION
  Report Type: Report from Study
  Country: US (occurrence: US)
  Receive Date: 20250606
  Receipt Date: 20250802
  Transmission Date: 20251021
  Serious: Yes (Hospitalization)
  Sender: ALEXION PHARMACEUTICALS
  Company Number: US-AstraZeneca-CH-00883470A

PATIENT
  Age: 63 Year
  Sex: Male

DRUGS (2)
  1. OLAPARIB [Suspect]
     Active Substance: OLAPARIB
     Route: 065
  2. ORGOVYX [Concomitant]
     Active Substance: RELUGOLIX
     Route: 065

REACTIONS (5)
  - Peripheral swelling [Unknown]
  - Type 2 diabetes mellitus [Unknown]
  - Bone pain [Unknown]
  - Road traffic accident [Unknown]
  - Drug hypersensitivity [Unknown]

NARRATIVE: CASE EVENT DATE: 20250602
